FAERS Safety Report 7119675-1 (Version None)
Quarter: 2010Q4

REPORT INFORMATION
  Report Type: 
  Country: None (occurrence: None)
  Receive Date: 20101123
  Receipt Date: 20101117
  Transmission Date: 20110411
  Serious: Yes (Other)
  Sender: FDA-Public Use
  Company Number: JP-EISAI INC.-E2090-01370-SPO-JP

PATIENT
  Sex: Female

DRUGS (7)
  1. EXCEGRAN [Suspect]
     Route: 048
     Dates: start: 20090918, end: 20091106
  2. NORVASC [Concomitant]
     Route: 048
     Dates: start: 20091016, end: 20091111
  3. MUCOSTA [Concomitant]
     Route: 048
     Dates: start: 20101016, end: 20091111
  4. FLUVASTATIN [Concomitant]
     Route: 048
     Dates: start: 20091016, end: 20091111
  5. DEPAKENE [Concomitant]
     Route: 048
     Dates: start: 20091006, end: 20091111
  6. MAGMITT [Concomitant]
     Route: 048
     Dates: start: 20090605
  7. LENDORMIN D [Concomitant]
     Dates: start: 20090605

REACTIONS (2)
  - DRUG RASH WITH EOSINOPHILIA AND SYSTEMIC SYMPTOMS [None]
  - HEPATIC FUNCTION ABNORMAL [None]
